FAERS Safety Report 16161997 (Version 1)
Quarter: 2019Q2

REPORT INFORMATION
  Report Type: Report from Study
  Country: IT (occurrence: IT)
  Receive Date: 20190405
  Receipt Date: 20190405
  Transmission Date: 20190711
  Serious: Yes (Life-Threatening)
  Sender: FDA-Public Use
  Company Number: IT-ACCORD-118034

PATIENT
  Age: 10 Year
  Sex: Male
  Weight: 17 kg

DRUGS (5)
  1. TOPIRAMATE. [Suspect]
     Active Substance: TOPIRAMATE
     Indication: EPILEPSY
     Route: 048
  2. RIVOTRIL [Suspect]
     Active Substance: CLONAZEPAM
     Indication: EPILEPSY
     Dosage: STRENGTH: 2.5 MG/ML
     Route: 048
     Dates: start: 20180123
  3. LUMINALE [Suspect]
     Active Substance: PHENOBARBITAL
     Indication: EPILEPSY
  4. FRISIUM [Suspect]
     Active Substance: CLOBAZAM
     Indication: EPILEPSY
     Dosage: REDUCED TO 15 MG
     Route: 048
  5. DINTOINA [Suspect]
     Active Substance: PHENYTOIN SODIUM
     Indication: EPILEPSY
     Dosage: STRENGTH: 100 MG
     Route: 048

REACTIONS (7)
  - Hypokalaemia [Recovering/Resolving]
  - Hypotonia [Recovering/Resolving]
  - Hypocalcaemia [Recovering/Resolving]
  - Poor feeding infant [Recovering/Resolving]
  - Hyperchloraemia [Recovering/Resolving]
  - Sopor [Recovering/Resolving]
  - Hypernatraemia [Recovering/Resolving]

NARRATIVE: CASE EVENT DATE: 20180124
